FAERS Safety Report 10227968 (Version 1)
Quarter: 2014Q2

REPORT INFORMATION
  Report Type: Spontaneous
  Country: US (occurrence: None)
  Receive Date: 20140609
  Receipt Date: 20140609
  Transmission Date: 20141212
  Serious: No
  Sender: FDA-Public Use
  Company Number: None

PATIENT
  Sex: 0

DRUGS (1)
  1. DICLOFENAC [Suspect]

REACTIONS (3)
  - Hemiparesis [None]
  - Hypoaesthesia [None]
  - Discomfort [None]
